FAERS Safety Report 5702433-X (Version None)
Quarter: 2008Q2

REPORT INFORMATION
  Report Type: 
  Country: None (occurrence: None)
  Receive Date: 20080411
  Receipt Date: 20080404
  Transmission Date: 20081010
  Serious: Yes (Hospitalization)
  Sender: FDA-Public Use
  Company Number: CH-BRISTOL-MYERS SQUIBB COMPANY-14118079

PATIENT
  Age: 79 Year
  Sex: Female
  Weight: 74 kg

DRUGS (6)
  1. ERBITUX [Suspect]
     Indication: COLON CANCER
     Dosage: STARTED ON 24-APR-2007
     Route: 042
     Dates: start: 20080117, end: 20080117
  2. ZANTAC [Suspect]
     Route: 042
     Dates: start: 20070117, end: 20080117
  3. IOHEXOL [Suspect]
     Dosage: DURING CT SCAN STOPPED
     Route: 042
     Dates: start: 20080118
  4. OMED [Concomitant]
     Route: 048
     Dates: start: 20060101
  5. OLMESARTAN MEDOXOMIL [Concomitant]
     Route: 048
     Dates: start: 20060101
  6. TAVEGYL [Concomitant]
     Route: 042
     Dates: start: 20080117, end: 20080118

REACTIONS (1)
  - LEUKOCYTOCLASTIC VASCULITIS [None]
